FAERS Safety Report 20329086 (Version 1)
Quarter: 2022Q1

REPORT INFORMATION
  Report Type: Spontaneous
  Country: US (occurrence: US)
  Receive Date: 20220112
  Receipt Date: 20220112
  Transmission Date: 20220423
  Serious: No
  Sender: FDA-Public Use
  Company Number: US-INTRA-CELLULAR THERAPIES, INC.-2021ICT00538

PATIENT
  Sex: Male

DRUGS (3)
  1. CAPLYTA [Suspect]
     Active Substance: LUMATEPERONE
     Indication: Schizophrenia
  2. CAPLYTA [Suspect]
     Active Substance: LUMATEPERONE
     Indication: Hallucination
  3. UNSPECIFIED LAI [LONG-ACTING INJECTABLE] [Concomitant]

REACTIONS (1)
  - Drug ineffective [Unknown]
